FAERS Safety Report 18195837 (Version 1)
Quarter: 2020Q3

REPORT INFORMATION
  Report Type: Report from Study
  Country: AU (occurrence: AU)
  Receive Date: 20200826
  Receipt Date: 20200826
  Transmission Date: 20201103
  Serious: Yes (Other)
  Sender: FDA-Public Use
  Company Number: AU-BEH-2020121609

PATIENT
  Age: 42 Year
  Sex: Male
  Weight: 80 kg

DRUGS (7)
  1. POSACONAZOLE [Concomitant]
     Active Substance: POSACONAZOLE
  2. HIZENTRA [Suspect]
     Active Substance: HUMAN IMMUNOGLOBULIN G
     Indication: SECONDARY IMMUNODEFICIENCY
     Dosage: 8 GRAM (40ML), QW
     Route: 058
     Dates: start: 20200811, end: 20200811
  3. BACTRIM [Concomitant]
     Active Substance: SULFAMETHOXAZOLE\TRIMETHOPRIM
  4. MAGNESIUM [Concomitant]
     Active Substance: MAGNESIUM
  5. IMATINIB TEVA [Concomitant]
     Active Substance: IMATINIB
  6. PREDNISOLONE. [Concomitant]
     Active Substance: PREDNISOLONE
  7. FAMCICLOVIR. [Concomitant]
     Active Substance: FAMCICLOVIR

REACTIONS (2)
  - Thermal burn [Not Recovered/Not Resolved]
  - Infusion site swelling [Not Recovered/Not Resolved]

NARRATIVE: CASE EVENT DATE: 20200811
